FAERS Safety Report 4756599-9 (Version None)
Quarter: 2005Q3

REPORT INFORMATION
  Report Type: 
  Country: None (occurrence: None)
  Receive Date: 20050830
  Receipt Date: 20050226
  Transmission Date: 20060218
  Serious: Yes (Other)
  Sender: FDA-Public Use
  Company Number: JP-ROCHE-397339

PATIENT
  Age: 28 Year
  Sex: Female

DRUGS (7)
  1. TAMIFLU [Suspect]
     Route: 048
     Dates: start: 20050223, end: 20050224
  2. ASTOMIN [Concomitant]
     Route: 048
     Dates: start: 20050221, end: 20050223
  3. DASEN [Concomitant]
     Route: 048
     Dates: start: 20050221, end: 20050223
  4. FLOMOX [Concomitant]
     Route: 048
     Dates: start: 20050221, end: 20050223
  5. VOLTAREN [Concomitant]
     Dosage: TAKEN AS NEEDED (25MG)
     Route: 048
     Dates: start: 20050221, end: 20050223
  6. SOLDEM [Concomitant]
     Route: 041
     Dates: start: 20050223, end: 20050223
  7. CALONAL [Concomitant]
     Route: 048
     Dates: start: 20050223, end: 20050224

REACTIONS (2)
  - ENTEROCOLITIS HAEMORRHAGIC [None]
  - MELAENA [None]
